FAERS Safety Report 22040342 (Version 7)
Quarter: 2023Q2

REPORT INFORMATION
  Report Type: Report from Study
  Country: NL (occurrence: NL)
  Receive Date: 20230227
  Receipt Date: 20230404
  Transmission Date: 20230721
  Serious: Yes (Other)
  Sender: FDA-Public Use
  Company Number: NL-SA-SAC20230222000908

PATIENT
  Age: 65 Year
  Sex: Female

DRUGS (23)
  1. ISATUXIMAB [Suspect]
     Active Substance: ISATUXIMAB
     Indication: Plasma cell myeloma
     Dosage: 700 MG
     Route: 065
     Dates: start: 20230103, end: 20230103
  2. ISATUXIMAB [Suspect]
     Active Substance: ISATUXIMAB
     Dosage: 700 MG
     Dates: start: 20220217, end: 20220217
  3. CARFILZOMIB [Suspect]
     Active Substance: CARFILZOMIB
     Indication: Plasma cell myeloma
     Dosage: 102 MG
     Dates: start: 20230117, end: 20230117
  4. CARFILZOMIB [Suspect]
     Active Substance: CARFILZOMIB
     Dosage: 102 MG
     Dates: start: 20220217, end: 20220217
  5. LENALIDOMIDE [Suspect]
     Active Substance: LENALIDOMIDE
     Indication: Plasma cell myeloma
     Dosage: 10 MG
     Dates: start: 20230123, end: 20230123
  6. LENALIDOMIDE [Suspect]
     Active Substance: LENALIDOMIDE
     Dosage: 10 MG
     Dates: start: 20220217, end: 20220217
  7. DEXAMETHASONE [Suspect]
     Active Substance: DEXAMETHASONE
     Indication: Plasma cell myeloma
     Dosage: 20 MG
     Dates: start: 20230117, end: 20230117
  8. DEXAMETHASONE [Suspect]
     Active Substance: DEXAMETHASONE
     Dosage: 20 MG
     Dates: start: 20220217, end: 20220217
  9. LORAZEPAM [Concomitant]
     Active Substance: LORAZEPAM
     Dosage: UNK
     Dates: start: 20210420
  10. FLUOXETINE [Concomitant]
     Active Substance: FLUOXETINE HYDROCHLORIDE
     Dosage: UNK
     Dates: start: 20210406
  11. METOCLOPRAMIDE [Concomitant]
     Active Substance: METOCLOPRAMIDE
     Indication: Mucosal inflammation
     Dosage: UNK
     Dates: start: 20210906
  12. VALACYCLOVIR HYDROCHLORIDE [Concomitant]
     Active Substance: VALACYCLOVIR HYDROCHLORIDE
     Indication: Prophylaxis
     Dosage: UNK
     Dates: start: 20210920
  13. VALACYCLOVIR HYDROCHLORIDE [Concomitant]
     Active Substance: VALACYCLOVIR HYDROCHLORIDE
     Dosage: 500 MG, QOD
     Dates: start: 20230214, end: 20230220
  14. ANTAGEL [ALUMINIUM OXIDE;MAGNESIUM HYDROXIDE] [Concomitant]
     Indication: Mucosal inflammation
     Dosage: UNK
     Dates: start: 20210921
  15. LOPERAMIDE [Concomitant]
     Active Substance: LOPERAMIDE
     Indication: Mucosal inflammation
     Dosage: 2 UNK
     Dates: start: 20210913
  16. LOPERAMIDE [Concomitant]
     Active Substance: LOPERAMIDE
     Indication: Diarrhoea
     Dosage: 2 MG
     Dates: start: 20230214
  17. ACETAMINOPHEN [Concomitant]
     Active Substance: ACETAMINOPHEN
     Indication: Neck pain
     Dosage: UNK
     Dates: start: 20211030
  18. CARBASPIRIN CALCIUM [Concomitant]
     Active Substance: CARBASPIRIN CALCIUM
     Indication: Prophylaxis
     Dosage: UNK
     Dates: start: 20211122
  19. SULFAMETHOXAZOLE\TRIMETHOPRIM [Concomitant]
     Active Substance: SULFAMETHOXAZOLE\TRIMETHOPRIM
     Indication: Prophylaxis
     Dosage: 480 MG, QD
     Dates: start: 20211122
  20. SULFAMETHOXAZOLE\TRIMETHOPRIM [Concomitant]
     Active Substance: SULFAMETHOXAZOLE\TRIMETHOPRIM
     Dosage: 480 MG, QD
     Dates: start: 20230214, end: 20230220
  21. CARBASPIRIN CALCIUM [Concomitant]
     Active Substance: CARBASPIRIN CALCIUM
     Dosage: 100 MG, QD
     Dates: start: 20230214, end: 20230220
  22. PANTOPRAZOLE [Concomitant]
     Active Substance: PANTOPRAZOLE
     Indication: Mucosal inflammation
     Dosage: 40 MG, QD
     Dates: start: 20230214
  23. PANTOPRAZOLE [Concomitant]
     Active Substance: PANTOPRAZOLE
     Indication: Diarrhoea

REACTIONS (1)
  - Immune thrombocytopenia [Recovered/Resolved]

NARRATIVE: CASE EVENT DATE: 20230220
